FAERS Safety Report 7649330-0 (Version None)
Quarter: 2011Q3

REPORT INFORMATION
  Report Type: 
  Country: None (occurrence: None)
  Receive Date: 20110726
  Receipt Date: 20110711
  Transmission Date: 20111222
  Serious: Yes (Other)
  Sender: FDA-Public Use
  Company Number: HA11-128-AE

PATIENT
  Age: 68 Year
  Sex: Female
  Weight: 62.1428 kg

DRUGS (16)
  1. GLICLAZIDE [Concomitant]
  2. ACETAMINOPHEN [Concomitant]
  3. CALCIUM CARBONATE [Concomitant]
  4. CYCLOBENZAPRINE [Concomitant]
  5. METFORMIN HCL [Concomitant]
  6. ACETYLSALICYLIC ACID SRT [Concomitant]
  7. ACARBOSE [Concomitant]
  8. ^ADITIL^ [Concomitant]
  9. LEVOTHYROXINE SODIUM [Concomitant]
  10. CODEINE SULFATE [Concomitant]
  11. NAPROXEN [Suspect]
     Indication: OSTEOARTHRITIS
     Dosage: HIGH DOSE, 3X/DAY, ORAL
     Route: 048
     Dates: start: 20091124
  12. NAPROXEN [Suspect]
     Indication: RHEUMATOID ARTHRITIS
     Dosage: HIGH DOSE, 3X/DAY, ORAL
     Route: 048
     Dates: start: 20091124
  13. CELECOXIB [Suspect]
     Indication: RHEUMATOID ARTHRITIS
     Dosage: HIGH DOSE, 3X/DAY, ORAL
     Route: 048
     Dates: start: 20091124
  14. CELECOXIB [Suspect]
     Indication: OSTEOARTHRITIS
     Dosage: HIGH DOSE, 3X/DAY, ORAL
     Route: 048
     Dates: start: 20091124
  15. NEXIUM [Concomitant]
  16. ATORVASTATIN [Concomitant]

REACTIONS (2)
  - GASTRIC NEOPLASM [None]
  - GASTRIC POLYPS [None]
